FAERS Safety Report 6146576-8 (Version None)
Quarter: 2009Q2

REPORT INFORMATION
  Report Type: 
  Country: None (occurrence: None)
  Receive Date: 20090407
  Receipt Date: 20090331
  Transmission Date: 20091009
  Serious: Yes (Hospitalization)
  Sender: FDA-Public Use
  Company Number: JP-AMGEN-US333091

PATIENT
  Sex: Female
  Weight: 47 kg

DRUGS (9)
  1. ENBREL [Suspect]
     Indication: RHEUMATOID ARTHRITIS
     Route: 058
     Dates: start: 20080118
  2. ASPARA-CA [Concomitant]
     Indication: OSTEOPOROSIS
     Dosage: UNSPECIFIED
     Route: 048
  3. URSO 250 [Concomitant]
     Indication: HEPATIC FUNCTION ABNORMAL
     Route: 048
  4. BASEN [Concomitant]
     Indication: DIABETES MELLITUS
     Route: 048
  5. GLUFAST [Concomitant]
     Indication: DIABETES MELLITUS
     Route: 048
  6. NU-LOTAN [Concomitant]
     Indication: HYPERTENSION
     Route: 048
  7. PREDNISOLONE [Concomitant]
     Indication: RHEUMATOID ARTHRITIS
     Route: 048
  8. LIPITOR [Concomitant]
     Indication: HYPERLIPIDAEMIA
     Route: 048
  9. ALFACALCIDOL [Concomitant]

REACTIONS (1)
  - HEPATIC FUNCTION ABNORMAL [None]
